FAERS Safety Report 4685753-X (Version None)
Quarter: 2005Q2

REPORT INFORMATION
  Report Type: 
  Country: None (occurrence: None)
  Receive Date: 20050608
  Receipt Date: 20050527
  Transmission Date: 20051028
  Serious: Yes (Hospitalization, Other)
  Sender: FDA-Public Use
  Company Number: KII-2005-016790

PATIENT
  Age: 16 Year
  Sex: Male

DRUGS (2)
  1. MORPHINE SULFATE [Suspect]
     Dosage: ORAL
     Route: 048
  2. OTHER HYPNOTICS AND SEDATIVES [Suspect]
     Dosage: ORAL
     Route: 048

REACTIONS (10)
  - CARDIAC DISORDER [None]
  - DRUG ABUSER [None]
  - DRUG INEFFECTIVE [None]
  - DRUG SCREEN POSITIVE [None]
  - LOSS OF CONSCIOUSNESS [None]
  - OXYGEN SATURATION DECREASED [None]
  - SEDATION [None]
  - SELF-MEDICATION [None]
  - TOXICOLOGIC TEST ABNORMAL [None]
  - TROPONIN INCREASED [None]
